FAERS Safety Report 20998518 (Version 1)
Quarter: 2022Q2

REPORT INFORMATION
  Report Type: Spontaneous
  Country: MM (occurrence: MM)
  Receive Date: 20220623
  Receipt Date: 20220623
  Transmission Date: 20220721
  Serious: Yes (Hospitalization, Disabling, Other)
  Sender: FDA-Public Use
  Company Number: MM-JNJFOC-20211224363

PATIENT
  Age: 38 Year
  Sex: Male
  Weight: 39 kg

DRUGS (13)
  1. SIRTURO [Suspect]
     Active Substance: BEDAQUILINE FUMARATE
     Indication: Tuberculosis
     Route: 048
     Dates: start: 20210515, end: 20211112
  2. SIRTURO [Suspect]
     Active Substance: BEDAQUILINE FUMARATE
     Dosage: OD 3DAYS/WEEK
     Route: 048
  3. LINEZOLID [Suspect]
     Active Substance: LINEZOLID
     Indication: Tuberculosis
     Route: 065
     Dates: start: 20210528, end: 20211201
  4. LEVOFLOXACIN [Suspect]
     Active Substance: LEVOFLOXACIN
     Indication: Tuberculosis
     Route: 065
     Dates: start: 20210201
  5. CYCLOSERINE [Suspect]
     Active Substance: CYCLOSERINE
     Indication: Tuberculosis
     Route: 065
     Dates: start: 20210201
  6. ETHIONAMIDE [Suspect]
     Active Substance: ETHIONAMIDE
     Indication: Tuberculosis
     Route: 065
     Dates: start: 20210201
  7. PYRAZINAMIDE [Suspect]
     Active Substance: PYRAZINAMIDE
     Indication: Tuberculosis
     Route: 065
     Dates: start: 20210201
  8. PYRIDOXINE [Concomitant]
     Active Substance: PYRIDOXINE
     Indication: Prophylaxis
     Dates: start: 20210201
  9. DOLUTEGRAVIR/LAMIVUDINE/TENOFOVIR DISOPROXIL FUMARATE [Concomitant]
     Indication: Antiviral treatment
     Dosage: (300/300/50
     Dates: start: 20210408
  10. COTRI [Concomitant]
     Indication: Prophylaxis
     Dates: start: 20210408
  11. GABAPENTIN [Concomitant]
     Active Substance: GABAPENTIN
     Indication: Palliative care
     Dates: start: 20211206
  12. ACETAMINOPHEN [Concomitant]
     Active Substance: ACETAMINOPHEN
     Indication: Palliative care
     Dates: start: 20211206
  13. METHYLCOBALAMIN [Concomitant]
     Active Substance: METHYLCOBALAMIN
     Indication: Toxic optic neuropathy
     Dates: start: 20220105

REACTIONS (3)
  - Anaemia [Recovered/Resolved]
  - Neuropathy peripheral [Unknown]
  - Toxic optic neuropathy [Unknown]

NARRATIVE: CASE EVENT DATE: 20210707
